FAERS Safety Report 7314009-1 (Version None)
Quarter: 2011Q1

REPORT INFORMATION
  Report Type: 
  Country: None (occurrence: None)
  Receive Date: 20110225
  Receipt Date: 20110214
  Transmission Date: 20110831
  Serious: Yes (Other)
  Sender: FDA-Public Use
  Company Number: NL-ACTELION-A-CH2010-41076

PATIENT
  Sex: Female

DRUGS (2)
  1. TRACLEER [Suspect]
     Dosage: UNK
     Route: 048
  2. TRACLEER [Suspect]
     Indication: SKIN ULCER
     Dosage: UNK , UNK
     Route: 048

REACTIONS (2)
  - PANCYTOPENIA [None]
  - LEUKOPENIA [None]
